FAERS Safety Report 16414523 (Version 3)
Quarter: 2019Q3

REPORT INFORMATION
  Report Type: Spontaneous
  Country: JP (occurrence: JP)
  Receive Date: 20190611
  Receipt Date: 20190705
  Transmission Date: 20191004
  Serious: Yes (Hospitalization, Other)
  Sender: FDA-Public Use
  Company Number: JP-PFIZER INC-2019247726

PATIENT
  Age: 68 Year
  Sex: Female

DRUGS (12)
  1. IBRANCE [Suspect]
     Active Substance: PALBOCICLIB
     Dosage: 75 MG, ONCE DAILY
     Route: 048
     Dates: start: 20190208, end: 20190301
  2. PRALIA [Concomitant]
     Active Substance: DENOSUMAB
     Indication: OSTEOPOROSIS
     Dosage: 60 MG, ONCE HALF-YEARLY
     Route: 058
     Dates: start: 20180223
  3. IBRANCE [Suspect]
     Active Substance: PALBOCICLIB
     Dosage: 75 MG, ONCE DAILY
     Route: 048
     Dates: start: 20181116, end: 20181207
  4. IBRANCE [Suspect]
     Active Substance: PALBOCICLIB
     Dosage: 100 MG, ONCE DAILY
     Route: 048
     Dates: start: 20180928, end: 20181019
  5. IBRANCE [Suspect]
     Active Substance: PALBOCICLIB
     Dosage: 75 MG, ONCE DAILY
     Route: 048
     Dates: start: 20181214, end: 20190104
  6. IBRANCE [Suspect]
     Active Substance: PALBOCICLIB
     Dosage: 75 MG, ONCE DAILY
     Route: 048
     Dates: start: 20190111, end: 20190201
  7. DENOTAS CHEWABLE [Concomitant]
     Active Substance: CALCIUM CARBONATE\CHOLECALCIFEROL\MAGNESIUM CARBONATE
     Indication: OSTEOPOROSIS
     Dosage: 2 TABLET, TWICE DAILY
     Route: 048
     Dates: start: 20180223
  8. RANMARK [Concomitant]
     Active Substance: DENOSUMAB
     Indication: BREAST CANCER RECURRENT
     Dosage: UNK
  9. IBRANCE [Suspect]
     Active Substance: PALBOCICLIB
     Dosage: 75 MG, ONCE DAILY
     Route: 048
     Dates: start: 20190503, end: 20190524
  10. IBRANCE [Suspect]
     Active Substance: PALBOCICLIB
     Indication: BREAST CANCER RECURRENT
     Dosage: 125 MG, ONCE DAILY
     Route: 048
     Dates: start: 20180817, end: 20180907
  11. FASLODEX [Concomitant]
     Active Substance: FULVESTRANT
     Indication: BREAST CANCER RECURRENT
     Dosage: 500 MG, ONCE MONTHLY
     Route: 030
     Dates: start: 20180817
  12. EDIROL [Concomitant]
     Active Substance: ELDECALCITOL
     Indication: OSTEOPOROSIS
     Dosage: 0.75 UG, ONCE DAILY
     Route: 048
     Dates: start: 20150220

REACTIONS (3)
  - Interstitial lung disease [Recovering/Resolving]
  - Pleural effusion [Unknown]
  - Neutrophil count decreased [Unknown]

NARRATIVE: CASE EVENT DATE: 20180914
